FAERS Safety Report 9790774 (Version 2)
Quarter: 2014Q1

REPORT INFORMATION
  Report Type: Spontaneous
  Country: BG (occurrence: BG)
  Receive Date: 20131231
  Receipt Date: 20140113
  Transmission Date: 20141002
  Serious: Yes (Hospitalization, Other)
  Sender: FDA-Public Use
  Company Number: PHHY2013BG151840

PATIENT
  Age: 71 Year
  Sex: Male
  Weight: 69 kg

DRUGS (1)
  1. GLIVEC [Suspect]
     Indication: CHRONIC MYELOID LEUKAEMIA
     Dosage: 400 MG, DAILY
     Route: 048
     Dates: start: 2008

REACTIONS (5)
  - Rectal adenocarcinoma [Recovering/Resolving]
  - Second primary malignancy [Recovering/Resolving]
  - Rectal polyp [Unknown]
  - Gastrointestinal motility disorder [Unknown]
  - Haematochezia [Unknown]
